FAERS Safety Report 21025097 (Version 1)
Quarter: 2022Q2

REPORT INFORMATION
  Report Type: Spontaneous
  Country: FR (occurrence: FR)
  Receive Date: 20220630
  Receipt Date: 20220630
  Transmission Date: 20220721
  Serious: Yes (Hospitalization)
  Sender: FDA-Public Use
  Company Number: FR-AFSSAPS-ST20221425

PATIENT
  Age: 21 Year
  Sex: Female

DRUGS (2)
  1. OMEPRAZOLE [Suspect]
     Active Substance: OMEPRAZOLE
     Indication: Gastrointestinal disorder
     Dosage: 60 MILLIGRAM, UNK
     Route: 048
     Dates: start: 20211116, end: 20211116
  2. VOGALENE [Suspect]
     Active Substance: METOPIMAZINE
     Indication: Gastrointestinal disorder
     Dosage: 5 MILLIGRAM, UNK
     Route: 054
     Dates: start: 20211116, end: 20211116

REACTIONS (2)
  - Urticaria [Recovered/Resolved]
  - Vomiting [Recovered/Resolved]

NARRATIVE: CASE EVENT DATE: 20211116
